FAERS Safety Report 6352871-X (Version None)
Quarter: 2009Q3

REPORT INFORMATION
  Report Type: 
  Country: None (occurrence: None)
  Receive Date: 20090912
  Receipt Date: 20090622
  Transmission Date: 20100115
  Serious: No
  Sender: FDA-Public Use
  Company Number: US-ABBOTT-08P-163-0448101-00

PATIENT
  Sex: Female
  Weight: 75.818 kg

DRUGS (11)
  1. HUMIRA [Suspect]
     Indication: CROHN'S DISEASE
     Dosage: LOADING DOSE
     Route: 058
     Dates: start: 20080418, end: 20080418
  2. HUMIRA [Suspect]
     Route: 058
  3. HUMIRA [Suspect]
     Route: 058
  4. VICODIN [Concomitant]
     Indication: PAIN
     Route: 048
  5. METHYLPHENIDATE HCL [Concomitant]
     Indication: ATTENTION DEFICIT/HYPERACTIVITY DISORDER
     Route: 048
  6. ESTAZOLAM [Concomitant]
     Indication: ANXIETY
     Route: 048
  7. LOPERAMIDE HYDROCHLORIDE [Concomitant]
     Indication: CROHN'S DISEASE
     Route: 048
  8. PREDNISONE [Concomitant]
     Indication: CROHN'S DISEASE
     Route: 048
  9. HYDROXYZINE [Concomitant]
     Indication: CROHN'S DISEASE
     Route: 048
  10. OMEPRAZOLE [Concomitant]
     Indication: DYSPEPSIA
     Route: 048
  11. NYSTOP POWDER [Concomitant]
     Indication: SKIN LESION
     Route: 048

REACTIONS (3)
  - INCORRECT DOSE ADMINISTERED [None]
  - INJECTION SITE PAIN [None]
  - WRONG TECHNIQUE IN DRUG USAGE PROCESS [None]
